FAERS Safety Report 8896330 (Version 1)
Quarter: 2012Q4

REPORT INFORMATION
  Report Type: 
  Country: US (occurrence: None)
  Receive Date: 20121107
  Receipt Date: 20121107
  Transmission Date: 20130627
  Serious: Yes (Death)
  Sender: FDA-Public Use
  Company Number: None

PATIENT
  Age: 79 Year
  Sex: Male

DRUGS (1)
  1. LORAZEPAM [Suspect]
     Dosage: 0.5 2 x day
1.0 2 x day
     Dates: start: 20120225, end: 20120316

REACTIONS (2)
  - Anxiety [None]
  - Depressed mood [None]
